FAERS Safety Report 9842983 (Version 2)
Quarter: 2014Q1

REPORT INFORMATION
  Report Type: Report from Study
  Country: JP (occurrence: JP)
  Receive Date: 20140124
  Receipt Date: 20140213
  Transmission Date: 20141002
  Serious: Yes (Hospitalization, Other)
  Sender: FDA-Public Use
  Company Number: JP-TAKEDA-2014TJP000790

PATIENT
  Age: 81 Year
  Sex: Male

DRUGS (2)
  1. PIOGLITAZONE, GLIMEPIRIDE [Suspect]
     Indication: TYPE 2 DIABETES MELLITUS
     Dosage: 1 DF, QD
     Route: 048
     Dates: start: 20130108, end: 20130509
  2. HARNAL [Concomitant]
     Dosage: UNK
     Route: 048

REACTIONS (1)
  - Oesophageal carcinoma [Recovering/Resolving]
